FAERS Safety Report 9000554 (Version 1)
Quarter: 2012Q4

REPORT INFORMATION
  Report Type: Spontaneous
  Country: GB (occurrence: None)
  Receive Date: 20121221
  Receipt Date: 20121221
  Transmission Date: 20130627
  Serious: Yes (Other)
  Sender: FDA-Public Use
  Company Number: AUR-APL-2012-05350

PATIENT
  Age: 63 Year
  Sex: Male
  Weight: 110 kg

DRUGS (5)
  1. AMLODIPINE [Suspect]
     Indication: HYPERTENSION
     Route: 048
     Dates: start: 2010, end: 2012
  2. RITONAVIR [Suspect]
     Indication: RETROVIRAL INFECTION
     Route: 048
     Dates: start: 201009
  3. BENDROFLUMETHIAZIDE (BENDROFLUMETHIAZIDE) [Concomitant]
  4. DARUNAVIR (DARUNAVIR) [Concomitant]
  5. TRUVADA (EMTRICITABINE) [Concomitant]

REACTIONS (5)
  - Generalised oedema [None]
  - Dyspnoea [None]
  - Malaise [None]
  - Drug interaction [None]
  - Retroviral infection [None]
